FAERS Safety Report 10424192 (Version 1)
Quarter: 2014Q3

REPORT INFORMATION
  Report Type: Spontaneous
  Country: US (occurrence: None)
  Receive Date: 20140722
  Receipt Date: 20140722
  Transmission Date: 20150326
  Serious: No
  Sender: FDA-Public Use
  Company Number: AEGR000461

PATIENT
  Age: 48 Year
  Sex: Female
  Weight: 87.1 kg

DRUGS (8)
  1. OMEPRAZOLE. [Concomitant]
     Active Substance: OMEPRAZOLE
  2. IMITREX [Concomitant]
     Active Substance: SUMATRIPTAN\SUMATRIPTAN SUCCINATE
  3. COZAAR [Concomitant]
     Active Substance: LOSARTAN POTASSIUM
  4. JUXTAPID [Suspect]
     Active Substance: LOMITAPIDE MESYLATE
     Indication: TYPE IIA HYPERLIPIDAEMIA
     Route: 048
     Dates: start: 20140220
  5. SINGULAIR [Concomitant]
     Active Substance: MONTELUKAST SODIUM
  6. PEPCID [Concomitant]
     Active Substance: FAMOTIDINE
  7. NORVASC [Concomitant]
     Active Substance: AMLODIPINE BESYLATE
  8. NEURONTIN [Concomitant]
     Active Substance: GABAPENTIN

REACTIONS (3)
  - Inappropriate schedule of drug administration [None]
  - Flushing [None]
  - Throat irritation [None]
